FAERS Safety Report 4694260-X (Version None)
Quarter: 2005Q2

REPORT INFORMATION
  Report Type: 
  Country: None (occurrence: None)
  Receive Date: 20050620
  Receipt Date: 20050614
  Transmission Date: 20051028
  Serious: Yes (Death)
  Sender: FDA-Public Use
  Company Number: JP-BOEHRINGER INGELHEIM PHARMACEUTICALS, INC.-2005-BP-09911NB

PATIENT
  Sex: Male

DRUGS (4)
  1. MICARDIS [Suspect]
     Indication: ESSENTIAL HYPERTENSION
     Route: 048
     Dates: start: 20040626, end: 20050404
  2. NORMONAL [Concomitant]
     Indication: CARDIAC FAILURE
     Route: 048
     Dates: start: 20010117, end: 20050404
  3. CARDENALIN [Concomitant]
     Indication: ESSENTIAL HYPERTENSION
     Route: 048
     Dates: start: 20010117, end: 20050404
  4. BAYASPIRIN [Concomitant]
     Indication: ATRIAL FIBRILLATION
     Route: 048
     Dates: start: 20010808, end: 20050404

REACTIONS (1)
  - ACUTE MYELOID LEUKAEMIA [None]
